FAERS Safety Report 8045675-3 (Version None)
Quarter: 2012Q1

REPORT INFORMATION
  Report Type: 
  Country: None (occurrence: None)
  Receive Date: 20120110
  Receipt Date: 20120105
  Transmission Date: 20120608
  Serious: Yes (Death, Hospitalization)
  Sender: FDA-Public Use
  Company Number: 1000026742

PATIENT
  Age: 74 Year
  Sex: Male

DRUGS (9)
  1. PROVENTIL (ALBUTEROL) (ALBUTEROL) [Concomitant]
  2. FLOMAX (TAMSULOSIN) (TAMSULOSIN) [Concomitant]
  3. LASIX [Concomitant]
  4. SYMBICORT (BUDESONIDE W/FORMOTEROL FUMARATE) (BUDESONIDE W/FORMOTEROL [Concomitant]
  5. COREG (CARVEDILOL) (CARVEDILOL) [Concomitant]
  6. DALIRESP [Suspect]
     Indication: CHRONIC OBSTRUCTIVE PULMONARY DISEASE
     Dosage: 500 MCG (500 MCG, 1 IN 1 D), ORAL
     Route: 048
     Dates: start: 20111202, end: 20111215
  7. ADVAIR (SERETIDE) (SERETIDE) [Concomitant]
  8. SPIRIVA (TIOTROPIUM BROMIDE) (TIOTROPIUM BROMIDE) [Concomitant]
  9. OXYGEN (OXYGEN) (OXYGEN) [Concomitant]

REACTIONS (2)
  - ACUTE MYOCARDIAL INFARCTION [None]
  - CONDITION AGGRAVATED [None]
